FAERS Safety Report 7039522-6 (Version None)
Quarter: 2010Q4

REPORT INFORMATION
  Report Type: 
  Country: None (occurrence: None)
  Receive Date: 20101012
  Receipt Date: 20101007
  Transmission Date: 20110411
  Serious: Yes (Death)
  Sender: FDA-Public Use
  Company Number: US-GILEAD-2010-0031085

PATIENT
  Sex: Male

DRUGS (12)
  1. LETAIRIS [Suspect]
     Indication: PULMONARY ARTERIAL HYPERTENSION
     Route: 048
     Dates: start: 20091216, end: 20100720
  2. POTASSIUM [Concomitant]
  3. FUROSEMIDE [Concomitant]
  4. FISH OIL [Concomitant]
  5. MULTI-VITAMIN [Concomitant]
  6. ASPIRIN [Concomitant]
  7. ZETIA [Concomitant]
  8. LISINOPRIL [Concomitant]
  9. SEPTRA [Concomitant]
  10. PREDNISONE [Concomitant]
  11. CELL CEPT [Concomitant]
  12. NAC 600 [Concomitant]

REACTIONS (1)
  - RESPIRATORY FAILURE [None]
